FAERS Safety Report 9367302 (Version 3)
Quarter: 2013Q3

REPORT INFORMATION
  Report Type: Spontaneous
  Country: US (occurrence: US)
  Receive Date: 20130625
  Receipt Date: 20130726
  Transmission Date: 20140515
  Serious: Yes (Hospitalization, Other)
  Sender: FDA-Public Use
  Company Number: US-MYLANLABS-2013S1013033

PATIENT
  Age: 48 Year
  Sex: Male

DRUGS (6)
  1. LEVETIRACETAM TABLETS [Suspect]
     Indication: CONVULSION
     Dates: start: 20110828
  2. LEVETIRACETAM TABLETS [Suspect]
     Indication: CONVULSION
     Dates: start: 20120919, end: 2013
  3. LISINOPRIL [Concomitant]
     Indication: BLOOD PRESSURE INCREASED
  4. CELEXA [Concomitant]
     Indication: DEPRESSION
  5. ELAVIL /00002202/ [Concomitant]
     Indication: DEPRESSION
  6. ASPIRIN [Concomitant]

REACTIONS (4)
  - Convulsion [Recovering/Resolving]
  - Complex partial seizures [Recovering/Resolving]
  - Grand mal convulsion [Recovering/Resolving]
  - Clavicle fracture [Not Recovered/Not Resolved]
